FAERS Safety Report 7949530-6 (Version None)
Quarter: 2011Q4

REPORT INFORMATION
  Report Type: 
  Country: None (occurrence: None)
  Receive Date: 20111130
  Receipt Date: 20111031
  Transmission Date: 20120403
  Serious: Yes (Death)
  Sender: FDA-Public Use
  Company Number: JP-ROCHE-1016981

PATIENT
  Sex: Male

DRUGS (22)
  1. RANIBIZUMAB [Suspect]
     Route: 050
     Dates: start: 20100402
  2. DILTIAZEM HCL [Concomitant]
  3. URSO 250 [Concomitant]
  4. EXCELASE (UNK INGREDIENTS) [Concomitant]
  5. GLAKAY [Concomitant]
  6. AMOBAN [Concomitant]
  7. OFLOXACIN [Concomitant]
     Dates: start: 20090807, end: 20091023
  8. CANDESARTAN CILEXETIL [Concomitant]
  9. RANIBIZUMAB [Suspect]
     Route: 050
     Dates: start: 20090515
  10. RANIBIZUMAB [Suspect]
     Route: 050
     Dates: start: 20100611
  11. PURSENNIDE [Concomitant]
  12. LEVOFLOXACIN [Concomitant]
     Dates: start: 20090401, end: 20101101
  13. RANIBIZUMAB [Suspect]
     Route: 050
     Dates: start: 20090612
  14. RANIBIZUMAB [Suspect]
     Route: 050
     Dates: start: 20100809
  15. RANIBIZUMAB [Suspect]
     Route: 050
     Dates: start: 20101105
  16. HYALEIN [Concomitant]
     Dates: start: 20091023
  17. RANIBIZUMAB [Suspect]
     Indication: AGE-RELATED MACULAR DEGENERATION
     Route: 050
     Dates: start: 20090415
  18. RANIBIZUMAB [Suspect]
     Route: 050
     Dates: start: 20100305
  19. METHYCOBAL [Concomitant]
  20. VIGAMOX [Concomitant]
     Dates: start: 20090705, end: 20091110
  21. DICLOD [Concomitant]
     Dates: start: 20090709, end: 20091023
  22. GLYCYRON [Concomitant]

REACTIONS (1)
  - DEATH [None]
